FAERS Safety Report 19475725 (Version 1)
Quarter: 2021Q2

REPORT INFORMATION
  Report Type: Spontaneous
  Country: US (occurrence: US)
  Receive Date: 20210629
  Receipt Date: 20210629
  Transmission Date: 20210717
  Serious: No
  Sender: FDA-Public Use
  Company Number: US-AMGEN-USASP2021097514

PATIENT
  Age: 9 Day
  Sex: Female

DRUGS (2)
  1. ARANESP [Suspect]
     Active Substance: DARBEPOETIN ALFA
     Dosage: UNK
     Route: 030
  2. ARANESP [Suspect]
     Active Substance: DARBEPOETIN ALFA
     Indication: HEREDITARY SPHEROCYTOSIS
     Dosage: UNK
     Route: 058
     Dates: start: 20210528

REACTIONS (2)
  - Product use in unapproved indication [Unknown]
  - Incorrect route of product administration [Unknown]

NARRATIVE: CASE EVENT DATE: 20210528
